FAERS Safety Report 10225634 (Version 1)
Quarter: 2014Q2

REPORT INFORMATION
  Report Type: Spontaneous
  Country: US (occurrence: US)
  Receive Date: 20140609
  Receipt Date: 20140609
  Transmission Date: 20141212
  Serious: No
  Sender: FDA-Public Use
  Company Number: US-ASTELLAS-2013US012755

PATIENT
  Sex: Female
  Weight: 58 kg

DRUGS (1)
  1. PROGRAF [Suspect]
     Indication: LIVER TRANSPLANT
     Dosage: 2.5 MG IN MORNING AND 3.5 MG IN EVENING
     Route: 048

REACTIONS (4)
  - Wrong technique in drug usage process [Unknown]
  - Underdose [None]
  - Memory impairment [Unknown]
  - Confusional state [Unknown]
